FAERS Safety Report 24095036 (Version 1)
Quarter: 2024Q3

REPORT INFORMATION
  Report Type: Spontaneous
  Country: CA (occurrence: CA)
  Receive Date: 20240716
  Receipt Date: 20240716
  Transmission Date: 20241017
  Serious: Yes (Other)
  Sender: CELLTRION
  Company Number: CA-CELLTRION INC.-2023CA010767

PATIENT

DRUGS (16)
  1. RITUXIMAB [Suspect]
     Active Substance: RITUXIMAB
     Indication: Rheumatoid arthritis
     Dosage: 1000.0 MILLIGRAM
     Route: 042
  2. RITUXIMAB [Suspect]
     Active Substance: RITUXIMAB
     Dosage: 1000.0 MILLIGRAM
     Route: 042
  3. LEFLUNOMIDE [Suspect]
     Active Substance: LEFLUNOMIDE
     Indication: Product used for unknown indication
     Dosage: UNK
     Route: 065
  4. RITUXIMAB [Suspect]
     Active Substance: RITUXIMAB
     Indication: Product used for unknown indication
     Dosage: 1.0 GRAM, 1 EVERY 2 WEEKS
     Route: 042
  5. ACETAMINOPHEN [Concomitant]
     Active Substance: ACETAMINOPHEN
     Dosage: 650.0 MILLIGRAM
     Route: 048
  6. AZATHIOPRINE [Concomitant]
     Active Substance: AZATHIOPRINE
     Dosage: 100.0 MILLIGRAM,  1 EVERY 1 DAYS
     Route: 048
  7. CALCIUM [Concomitant]
     Active Substance: CALCIUM
     Dosage: UNK
  8. DILAUDID [Concomitant]
     Active Substance: HYDROMORPHONE HYDROCHLORIDE
  9. DIPHENHYDRAMINE HYDROCHLORIDE [Concomitant]
     Active Substance: DIPHENHYDRAMINE HYDROCHLORIDE
     Dosage: 50.0 MILLIGRAM
     Route: 048
  10. METHYLPREDNISOLONE [Concomitant]
     Active Substance: METHYLPREDNISOLONE
     Dosage: 100.0 MILLIGRAM
     Route: 042
  11. PREDNISONE [Concomitant]
     Active Substance: PREDNISONE
  12. SENNOSIDES A AND B [Concomitant]
     Active Substance: SENNOSIDES A AND B
  13. SIMPONI [Concomitant]
     Active Substance: GOLIMUMAB
     Dosage: 50.0 MILLIGRAM, 1 EVERY 1 MONTHS
     Route: 058
  14. TAMSULOSIN [Concomitant]
     Active Substance: TAMSULOSIN
  15. VITAMIN C [Concomitant]
     Active Substance: ASCORBIC ACID
  16. WARFARIN [Concomitant]
     Active Substance: WARFARIN

REACTIONS (3)
  - Rheumatoid arthritis [Unknown]
  - Interstitial lung disease [Unknown]
  - Drug hypersensitivity [Unknown]
